FAERS Safety Report 25522512 (Version 1)
Quarter: 2025Q3

REPORT INFORMATION
  Report Type: Spontaneous
  Country: GB (occurrence: GB)
  Receive Date: 20250707
  Receipt Date: 20250707
  Transmission Date: 20251020
  Serious: Yes (Hospitalization, Other)
  Sender: NOVO NORDISK
  Company Number: None

PATIENT
  Age: 56 Year
  Sex: Male
  Weight: 112 kg

DRUGS (2)
  1. OZEMPIC [Suspect]
     Active Substance: SEMAGLUTIDE
     Indication: Type 2 diabetes mellitus
  2. OZEMPIC [Suspect]
     Active Substance: SEMAGLUTIDE
     Indication: Adverse drug reaction
     Route: 048
     Dates: start: 20250401, end: 20250515

REACTIONS (7)
  - Medication error [Unknown]
  - Illness [Recovered/Resolved]
  - Diarrhoea [Unknown]
  - Abdominal pain upper [Unknown]
  - Haematochezia [Unknown]
  - Anaemia [Unknown]
  - Malaise [Unknown]

NARRATIVE: CASE EVENT DATE: 20250501
